FAERS Safety Report 23183873 (Version 1)
Quarter: 2023Q4

REPORT INFORMATION
  Report Type: Spontaneous
  Country: US (occurrence: US)
  Receive Date: 20231114
  Receipt Date: 20231114
  Transmission Date: 20240109
  Serious: No
  Sender: FDA-Public Use
  Company Number: US-ARIS GLOBAL-38399

PATIENT
  Age: 55 Year
  Sex: Female

DRUGS (8)
  1. DEVICE [Suspect]
     Active Substance: DEVICE
     Indication: Product used for unknown indication
     Dates: start: 20221006, end: 20221006
  2. PHOTREXA [Suspect]
     Active Substance: RIBOFLAVIN 5^-PHOSPHATE SODIUM
     Indication: Keratoconus
     Dates: start: 20221006, end: 20221006
  3. PHOTREXA VISCOUS [Suspect]
     Active Substance: RIBOFLAVIN 5^-PHOSPHATE SODIUM
     Indication: Keratoconus
     Dates: start: 20221006, end: 20221006
  4. Ocuflux [Concomitant]
     Indication: Antibiotic prophylaxis
     Dosage: 0.3% OD (RIGHT EYE)
     Route: 047
     Dates: start: 20221003
  5. PREDNISOLONE [Concomitant]
     Active Substance: PREDNISOLONE
     Indication: Product used for unknown indication
  6. KETOROLAC [Concomitant]
     Active Substance: KETOROLAC TROMETHAMINE
     Indication: Product used for unknown indication
  7. reflex tears eye drops [Concomitant]
     Indication: Product used for unknown indication
  8. DEVICE [Concomitant]
     Active Substance: DEVICE
     Indication: Product used for unknown indication

REACTIONS (2)
  - Drug ineffective [Unknown]
  - Therapy cessation [Unknown]

NARRATIVE: CASE EVENT DATE: 20221006
